FAERS Safety Report 9205254 (Version 2)
Quarter: 2013Q2

REPORT INFORMATION
  Report Type: Spontaneous
  Country: US (occurrence: US)
  Receive Date: 20130402
  Receipt Date: 20130425
  Transmission Date: 20140414
  Serious: No
  Sender: FDA-Public Use
  Company Number: US-ASTRAZENECA-2011SE46090

PATIENT
  Age: 48 Year
  Sex: Female

DRUGS (1)
  1. SYMBICORT PMDI [Suspect]
     Indication: ASTHMA
     Dosage: UNKNOWN
     Route: 055

REACTIONS (4)
  - Dyspnoea [Unknown]
  - Panic attack [Unknown]
  - Nausea [Unknown]
  - Drug dose omission [Unknown]
